FAERS Safety Report 6994259-4 (Version None)
Quarter: 2010Q3

REPORT INFORMATION
  Report Type: 
  Country: None (occurrence: None)
  Receive Date: 20100917
  Receipt Date: 20070727
  Transmission Date: 20110219
  Serious: Yes (Other)
  Sender: FDA-Public Use
  Company Number: US-ASTRAZENECA-2006UW24540

PATIENT
  Age: 463 Month
  Sex: Female
  Weight: 74.4 kg

DRUGS (16)
  1. SEROQUEL [Suspect]
     Indication: BIPOLAR DISORDER
     Dosage: 150 MG - 400 MG
     Route: 048
     Dates: start: 20030508
  2. SEROQUEL [Suspect]
     Indication: DEPRESSION
     Dosage: 150 MG - 400 MG
     Route: 048
     Dates: start: 20030508
  3. SEROQUEL [Suspect]
     Indication: PSYCHOTIC DISORDER
     Dosage: 150 MG - 400 MG
     Route: 048
     Dates: start: 20030508
  4. ABILIFY [Concomitant]
  5. CLOZARIL [Concomitant]
  6. GEODON [Concomitant]
  7. THORAZINE [Concomitant]
  8. ZYPREXA [Concomitant]
     Dosage: STRENGTH 5 MG, 10 MG, 15 MG, 150 MG.  DOSE 5 MG - 150 MG
     Dates: start: 20020911
  9. ZOLOFT [Concomitant]
     Route: 048
     Dates: start: 20060531
  10. ASPIRIN [Concomitant]
     Dates: start: 20030921
  11. DEPAKOTE ER [Concomitant]
     Dosage: STRENGTH 500 MG, 1000 MG. DOSE 1000 MG - 1500 MG
  12. TRAZODONE HCL [Concomitant]
     Dates: start: 20030921
  13. LEXAPRO [Concomitant]
     Dates: start: 20030508
  14. EFFEXOR XR [Concomitant]
     Dosage: STRENGTH 75 MG, 150 MG.  DOSE 75 MG - 300 MG
     Dates: start: 20030508, end: 20030921
  15. TOPAMAX [Concomitant]
     Dates: start: 20030508, end: 20030921
  16. TRILEPTAL [Concomitant]
     Dates: start: 20030508, end: 20030921

REACTIONS (2)
  - DIABETES MELLITUS [None]
  - NEUROLEPTIC MALIGNANT SYNDROME [None]
